FAERS Safety Report 5350079-8 (Version None)
Quarter: 2007Q2

REPORT INFORMATION
  Report Type: 
  Country: None (occurrence: None)
  Receive Date: 20070607
  Receipt Date: 20070530
  Transmission Date: 20071010
  Serious: Yes (Other)
  Sender: FDA-Public Use
  Company Number: FR-ABBOTT-07P-056-0365700-00

PATIENT
  Sex: Female

DRUGS (13)
  1. DEPAKENE [Suspect]
     Indication: EPILEPSY
     Route: 048
     Dates: end: 20060801
  2. DEPAKENE [Suspect]
     Route: 048
     Dates: start: 20070504
  3. DEPAKENE [Suspect]
     Indication: EPILEPSY
     Dates: start: 20060801, end: 20060901
  4. DEPAKENE [Suspect]
  5. MICROPAKINE GRANULES 33% [Suspect]
     Indication: EPILEPSY
     Route: 048
     Dates: start: 20060801
  6. PHENOBARBITAL TAB [Concomitant]
     Indication: EPILEPSY
     Route: 048
  7. LAMOTRIGINE [Concomitant]
     Indication: EPILEPSY
     Route: 048
  8. OLANZAPINE [Concomitant]
     Indication: DRUG USE FOR UNKNOWN INDICATION
     Route: 048
     Dates: start: 20060801
  9. CALCIFEDIOL [Concomitant]
     Indication: MINERAL SUPPLEMENTATION
     Route: 048
  10. EUGYNON [Concomitant]
     Indication: CONTRACEPTION
     Route: 065
  11. PARACETAMOL [Concomitant]
     Indication: DRUG USE FOR UNKNOWN INDICATION
     Route: 065
  12. SONDALIS [Concomitant]
     Indication: NUTRITIONAL SUPPORT
     Route: 050
  13. CLONAZEPAM [Concomitant]
     Indication: EPILEPSY
     Route: 048

REACTIONS (5)
  - CONDITION AGGRAVATED [None]
  - DRUG LEVEL DECREASED [None]
  - EPILEPSY [None]
  - FOOD INTERACTION [None]
  - MALABSORPTION [None]
